FAERS Safety Report 17886504 (Version 2)
Quarter: 2020Q3

REPORT INFORMATION
  Report Type: Report from Study
  Country: US (occurrence: US)
  Receive Date: 20200611
  Receipt Date: 20200818
  Transmission Date: 20201103
  Serious: No
  Sender: FDA-Public Use
  Company Number: NVSC2020US162926

PATIENT
  Sex: Female

DRUGS (1)
  1. PROMACTA [Suspect]
     Active Substance: ELTROMBOPAG OLAMINE
     Indication: PRODUCT USED FOR UNKNOWN INDICATION
     Dosage: 50 MG, ONCE3SDO
     Route: 048

REACTIONS (5)
  - Mouth haemorrhage [Unknown]
  - Fatigue [Unknown]
  - Platelet count decreased [Unknown]
  - Mouth swelling [Unknown]
  - Gingival bleeding [Unknown]
